FAERS Safety Report 5456000-6 (Version None)
Quarter: 2007Q3

REPORT INFORMATION
  Report Type: 
  Country: None (occurrence: None)
  Receive Date: 20070918
  Receipt Date: 20070228
  Transmission Date: 20080115
  Serious: Yes (Hospitalization)
  Sender: FDA-Public Use
  Company Number: US-ASTRAZENECA-2006UW23665

PATIENT
  Sex: Female
  Weight: 59.1 kg

DRUGS (6)
  1. SEROQUEL [Suspect]
     Indication: BIPOLAR DISORDER
     Dosage: 175MG-300MG
     Route: 048
     Dates: start: 20030101
  2. HALDOL [Concomitant]
  3. NAVANE [Concomitant]
  4. THORAZINE [Concomitant]
  5. TRILAFON [Concomitant]
  6. ZYPREXA [Concomitant]

REACTIONS (1)
  - PANCREATITIS [None]
